FAERS Safety Report 13388546 (Version 3)
Quarter: 2017Q2

REPORT INFORMATION
  Report Type: Spontaneous
  Country: US (occurrence: US)
  Receive Date: 20170330
  Receipt Date: 20170612
  Transmission Date: 20170830
  Serious: Yes (Hospitalization, Other)
  Sender: FDA-Public Use
  Company Number: US-SMITH AND NEPHEW, INC-2017SMT00182

PATIENT
  Age: 81 Year
  Sex: Male
  Weight: 97.51 kg

DRUGS (4)
  1. LASIX [Concomitant]
     Active Substance: FUROSEMIDE
  2. ^INSULIN PROLOG^ [Concomitant]
  3. REGRANEX [Suspect]
     Active Substance: BECAPLERMIN
     Indication: DIABETIC ULCER
     Dosage: UNK, 1X/DAY FOR 12 HOURS ON AND 12 HOURS OFF
     Route: 061
     Dates: start: 201702
  4. LANTUS [Concomitant]
     Active Substance: INSULIN GLARGINE

REACTIONS (8)
  - Peripheral swelling [Recovering/Resolving]
  - Hypothyroidism [Unknown]
  - Peripheral vascular disorder [Unknown]
  - Acute left ventricular failure [Recovered/Resolved]
  - Blood glucose fluctuation [Unknown]
  - Micturition disorder [Recovering/Resolving]
  - Orthostatic hypotension [Recovered/Resolved]
  - Benign prostatic hyperplasia [Unknown]

NARRATIVE: CASE EVENT DATE: 201703
